FAERS Safety Report 4514876-0 (Version None)
Quarter: 2004Q4

REPORT INFORMATION
  Report Type: 
  Country: None (occurrence: None)
  Receive Date: 20041201
  Receipt Date: 20041122
  Transmission Date: 20050328
  Serious: Yes (Hospitalization, Disabling, Other)
  Sender: FDA-Public Use
  Company Number: GB-JNJFOC-20041106100

PATIENT
  Age: 14 Year
  Sex: Female
  Weight: 66 kg

DRUGS (7)
  1. RISPERDAL CONSTA [Suspect]
     Route: 030
  2. DEPAKOTE [Suspect]
     Route: 049
  3. DIAZEPAM [Suspect]
     Indication: SEDATION
     Route: 049
  4. SETRALINE [Suspect]
     Indication: OBSESSIVE-COMPULSIVE DISORDER
     Dosage: 175-75MG
     Route: 049
  5. OLANZAPINE [Concomitant]
     Route: 049
  6. LORAZEPAM [Concomitant]
     Dosage: 1-4 MG PRN
     Route: 065
  7. OXYTETRACYCLINE [Concomitant]
     Route: 065

REACTIONS (5)
  - CONSTIPATION [None]
  - HYPERPROLACTINAEMIA [None]
  - URINARY RETENTION [None]
  - URINARY TRACT INFECTION [None]
  - WEIGHT INCREASED [None]
